FAERS Safety Report 5131257-X (Version None)
Quarter: 2006Q4

REPORT INFORMATION
  Report Type: 
  Country: None (occurrence: None)
  Receive Date: 20061020
  Receipt Date: 20061009
  Transmission Date: 20070319
  Serious: Yes (Hospitalization)
  Sender: FDA-Public Use
  Company Number: 2006GB01805

PATIENT
  Age: 79 Year
  Sex: Female

DRUGS (4)
  1. CANDESARTAN [Suspect]
     Indication: HYPERTENSION
     Route: 048
     Dates: start: 20060830, end: 20060914
  2. ARTHROTEC [Concomitant]
     Indication: OSTEOARTHRITIS
     Route: 048
  3. BETAHISTINE [Concomitant]
     Indication: MENIERE'S DISEASE
     Route: 048
  4. FUROSEMIDE [Concomitant]
     Indication: JOINT SWELLING
     Route: 048

REACTIONS (2)
  - ORTHOSTATIC HYPOTENSION [None]
  - RENAL IMPAIRMENT [None]
